FAERS Safety Report 8709356 (Version 7)
Quarter: 2013Q2

REPORT INFORMATION
  Report Type: Spontaneous
  Country: US (occurrence: US)
  Receive Date: 20120806
  Receipt Date: 20130416
  Transmission Date: 20140414
  Serious: Yes (Hospitalization, Disabling, Other)
  Sender: FDA-Public Use
  Company Number: US-009507513-1208USA000232

PATIENT
  Sex: Female
  Weight: 61.22 kg

DRUGS (5)
  1. NUVARING [Suspect]
     Indication: CONTRACEPTION
     Dosage: UNK
     Dates: start: 200811, end: 200908
  2. NUVARING [Suspect]
     Indication: MENSTRUATION IRREGULAR
  3. VITAMINS (UNSPECIFIED) [Concomitant]
     Dosage: UNK, QD
  4. CHONDROITIN SULFATE SODIUM (+) GLUCOSAMINE SULFATE [Concomitant]
     Dosage: UNK, QD
  5. ARMOUR THYROID TABLETS [Concomitant]
     Dosage: UNK
     Dates: start: 2008

REACTIONS (19)
  - Coagulopathy [Unknown]
  - Pulmonary embolism [Recovered/Resolved]
  - Migraine [Unknown]
  - Mood swings [Unknown]
  - Fall [Unknown]
  - Musculoskeletal pain [Unknown]
  - Musculoskeletal chest pain [Unknown]
  - Fatigue [Unknown]
  - Hormone level abnormal [Not Recovered/Not Resolved]
  - Deep vein thrombosis [Not Recovered/Not Resolved]
  - Computerised tomogram abnormal [Unknown]
  - Dizziness [Recovered/Resolved]
  - Presyncope [Unknown]
  - Off label use [Unknown]
  - Musculoskeletal chest pain [Unknown]
  - Neck pain [Unknown]
  - Anxiety [Unknown]
  - Sleep disorder [Unknown]
  - Hypertension [Unknown]
